FAERS Safety Report 15046135 (Version 8)
Quarter: 2018Q3

REPORT INFORMATION
  Report Type: Report from Study
  Country: US (occurrence: US)
  Receive Date: 20180621
  Receipt Date: 20180803
  Transmission Date: 20181010
  Serious: Yes (Other)
  Sender: FDA-Public Use
  Company Number: US-PFIZER INC-2018233839

PATIENT
  Age: 73 Year
  Sex: Female

DRUGS (3)
  1. IBRANCE [Suspect]
     Active Substance: PALBOCICLIB
     Dosage: 100 MG, CYCLIC (DAILY, 21 DAYS ON, 7 DAYS OFF)
     Route: 048
     Dates: start: 20180625
  2. IBRANCE [Suspect]
     Active Substance: PALBOCICLIB
     Dosage: 100 MG, CYCLIC (DAILY, 21 DAYS ON, 7 DAYS OFF)
     Route: 048
     Dates: start: 20180530
  3. IBRANCE [Suspect]
     Active Substance: PALBOCICLIB
     Indication: BREAST CANCER FEMALE
     Dosage: 125 MG, 1X/DAY
     Route: 048
     Dates: start: 20180530, end: 20180612

REACTIONS (14)
  - Oropharyngeal pain [Recovered/Resolved]
  - Fatigue [Unknown]
  - Dry skin [Unknown]
  - Chest discomfort [Recovered/Resolved]
  - Rectal haemorrhage [Recovered/Resolved]
  - Chills [Unknown]
  - Skin exfoliation [Unknown]
  - Hypertension [Recovered/Resolved]
  - Pruritus [Unknown]
  - Tachycardia [Recovered/Resolved]
  - White blood cell count decreased [Unknown]
  - Hot flush [Recovering/Resolving]
  - Bone marrow failure [Unknown]
  - Constipation [Unknown]

NARRATIVE: CASE EVENT DATE: 2018
